FAERS Safety Report 8476532-6 (Version None)
Quarter: 2012Q2

REPORT INFORMATION
  Report Type: 
  Country: None (occurrence: None)
  Receive Date: 20120628
  Receipt Date: 20120622
  Transmission Date: 20120825
  Serious: No
  Sender: FDA-Public Use
  Company Number: US-TEVA-345136USA

PATIENT
  Sex: Male

DRUGS (3)
  1. SERTRALINE HYDROCHLORIDE [Concomitant]
  2. NUVIGIL [Suspect]
     Indication: DEPRESSION
     Dosage: 250 MILLIGRAM;
     Route: 048
     Dates: start: 20120601, end: 20120620
  3. NUVIGIL [Suspect]
     Indication: SLEEP APNOEA SYNDROME
     Dosage: 150 MILLIGRAM;
     Route: 048
     Dates: start: 20120601, end: 20120615

REACTIONS (5)
  - INSOMNIA [None]
  - DEPRESSION [None]
  - ABDOMINAL PAIN UPPER [None]
  - HEADACHE [None]
  - DRUG INEFFECTIVE [None]
